FAERS Safety Report 8181516-1 (Version None)
Quarter: 2012Q1

REPORT INFORMATION
  Report Type: 
  Country: None (occurrence: None)
  Receive Date: 20120302
  Receipt Date: 20120228
  Transmission Date: 20120608
  Serious: Yes (Disabling, Other)
  Sender: FDA-Public Use
  Company Number: US-ABBOTT-11P-163-0868838-00

PATIENT
  Sex: Female
  Weight: 74.002 kg

DRUGS (9)
  1. KEPPRA [Suspect]
     Indication: CONVULSION PROPHYLAXIS
     Dates: start: 20101101, end: 20110201
  2. ADULT ASPIRIN LOW STRENGTH [Concomitant]
     Indication: PRODUCT USED FOR UNKNOWN INDICATION
     Route: 048
  3. CALCIUM [Concomitant]
     Indication: PRODUCT USED FOR UNKNOWN INDICATION
     Route: 048
  4. DIVALPROEX SODIUM [Suspect]
     Indication: CONVULSION
  5. DEPAKOTE ER [Suspect]
     Indication: CONVULSION
     Dates: start: 20070101, end: 20101101
  6. PRIMIDONE [Suspect]
     Indication: TREMOR
     Route: 048
  7. PRIMIDONE [Suspect]
  8. TRIAZOLAM [Concomitant]
     Indication: INSOMNIA
     Dosage: QHS
  9. DEPAKOTE ER [Suspect]
     Dates: start: 20110201

REACTIONS (18)
  - COGNITIVE DISORDER [None]
  - ASTHENIA [None]
  - DRUG INEFFECTIVE [None]
  - SPEECH DISORDER [None]
  - MOBILITY DECREASED [None]
  - GRAND MAL CONVULSION [None]
  - HEAD TITUBATION [None]
  - BACK PAIN [None]
  - GAIT DISTURBANCE [None]
  - TREMOR [None]
  - INSOMNIA [None]
  - AMNESIA [None]
  - COORDINATION ABNORMAL [None]
  - CONVULSION [None]
  - DIZZINESS [None]
  - ILL-DEFINED DISORDER [None]
  - ATAXIA [None]
  - DYSKINESIA [None]
